FAERS Safety Report 7798882-9 (Version None)
Quarter: 2011Q4

REPORT INFORMATION
  Report Type: 
  Country: None (occurrence: None)
  Receive Date: 20111006
  Receipt Date: 20110926
  Transmission Date: 20120403
  Serious: Yes (Hospitalization)
  Sender: FDA-Public Use
  Company Number: US-JNJFOC-20110910891

PATIENT
  Sex: Male
  Weight: 90.72 kg

DRUGS (4)
  1. REMICADE [Suspect]
     Indication: RHEUMATOID ARTHRITIS
     Route: 042
     Dates: start: 20110909
  2. METHOTREXATE [Concomitant]
     Indication: RHEUMATOID ARTHRITIS
     Route: 058
     Dates: start: 19960101
  3. PREDNISONE [Concomitant]
     Indication: RHEUMATOID ARTHRITIS
     Route: 048
     Dates: start: 19810101
  4. ATENOLOL [Concomitant]
     Indication: HEART RATE IRREGULAR
     Route: 048
     Dates: start: 20010101

REACTIONS (2)
  - HYPOAESTHESIA [None]
  - PARAESTHESIA [None]
